FAERS Safety Report 9621415 (Version 1)
Quarter: 2013Q4

REPORT INFORMATION
  Report Type: Spontaneous
  Country: US (occurrence: US)
  Receive Date: 20131015
  Receipt Date: 20131015
  Transmission Date: 20140711
  Serious: No
  Sender: FDA-Public Use
  Company Number: US-PFIZER INC-2013291502

PATIENT
  Sex: Female

DRUGS (5)
  1. TIKOSYN [Suspect]
     Dosage: 250 UG, 2X/DAY
     Route: 048
  2. TIKOSYN [Suspect]
     Dosage: TOTAL DOSE OF 312.5MCG (BY OPENING 250MCG CAPSULE TO TAKE ADDITIONAL 125MCG ALONG WITH 250MCG)
  3. TIKOSYN [Suspect]
     Dosage: UNK, (EVERY 9 HOURS)
  4. TIKOSYN [Suspect]
     Dosage: 500 UG, UNK
  5. TIKOSYN [Suspect]
     Dosage: 333 UG, 2X/DAY

REACTIONS (5)
  - Obsessive-compulsive disorder [Unknown]
  - Headache [Unknown]
  - Drug ineffective [Unknown]
  - Incorrect dose administered [Unknown]
  - Wrong technique in drug usage process [Unknown]
